FAERS Safety Report 16858782 (Version 1)
Quarter: 2019Q3

REPORT INFORMATION
  Report Type: Spontaneous
  Country: US (occurrence: US)
  Receive Date: 20190926
  Receipt Date: 20190926
  Transmission Date: 20191005
  Serious: Yes (Other)
  Sender: FDA-Public Use
  Company Number: US-NOVOPROD-686231

PATIENT
  Age: 62 Year
  Sex: Male

DRUGS (3)
  1. OZEMPIC [Suspect]
     Active Substance: SEMAGLUTIDE
     Indication: DIABETES MELLITUS
     Dosage: 1 MG, QW
     Route: 058
     Dates: start: 201908
  2. TRESIBA [Suspect]
     Active Substance: INSULIN DEGLUDEC
     Dosage: 70 IU
     Route: 058
     Dates: start: 201909
  3. TRESIBA [Suspect]
     Active Substance: INSULIN DEGLUDEC
     Indication: DIABETES MELLITUS
     Dosage: 50 IU
     Route: 058
     Dates: start: 2019, end: 201909

REACTIONS (4)
  - Cataract operation [Recovering/Resolving]
  - Blood glucose increased [Recovered/Resolved]
  - Blood glucose decreased [Recovered/Resolved]
  - Cataract operation [Recovering/Resolving]

NARRATIVE: CASE EVENT DATE: 2019
